FAERS Safety Report 5305749-4 (Version None)
Quarter: 2007Q2

REPORT INFORMATION
  Report Type: 
  Country: None (occurrence: None)
  Receive Date: 20070416
  Receipt Date: 20070403
  Transmission Date: 20071010
  Serious: Yes (Hospitalization)
  Sender: FDA-Public Use
  Company Number: CAP07000154

PATIENT
  Age: 54 Year
  Sex: Female

DRUGS (5)
  1. ACTONEL [Suspect]
     Indication: OSTEOPOROSIS
     Dosage: 35 MG ONCE WEEKLY, ORAL
     Route: 048
     Dates: start: 20060701
  2. ASACOL [Suspect]
     Indication: COLITIS
     Dosage: 2400 MG TWICE DAILY, ORAL
     Route: 048
  3. CALCIUM (CALCIUM) [Concomitant]
  4. VITAMIN D /00107901/ (ERGOCALCIFEROL) [Concomitant]
  5. SALOFALK /00000301/ (AMINOSALICYLIC ACID) [Concomitant]

REACTIONS (2)
  - PULMONARY EMBOLISM [None]
  - THERAPEUTIC RESPONSE UNEXPECTED [None]
